FAERS Safety Report 13021748 (Version 1)
Quarter: 2016Q4

REPORT INFORMATION
  Report Type: Spontaneous
  Country: JP (occurrence: JP)
  Receive Date: 20161213
  Receipt Date: 20161213
  Transmission Date: 20170207
  Serious: Yes (Other)
  Sender: FDA-Public Use
  Company Number: JP-ROCHE-1865773

PATIENT
  Age: 28 Year
  Sex: Female

DRUGS (3)
  1. ALPRAZOLAM. [Concomitant]
     Active Substance: ALPRAZOLAM
     Dosage: DOSAGE IS UNCERTAIN.
     Route: 048
  2. LORAZEPAM. [Concomitant]
     Active Substance: LORAZEPAM
     Dosage: DOSAGE IS UNCERTAIN.
     Route: 048
  3. RIVOTRIL [Suspect]
     Active Substance: CLONAZEPAM
     Indication: PERSISTENT DEPRESSIVE DISORDER
     Dosage: DOSAGE IS UNCERTAIN.
     Route: 048

REACTIONS (4)
  - Maternal exposure during pregnancy [Unknown]
  - Off label use [Unknown]
  - Blood creatine phosphokinase increased [Recovered/Resolved]
  - Abdominal discomfort [Unknown]
